FAERS Safety Report 8028261-0 (Version None)
Quarter: 2012Q1

REPORT INFORMATION
  Report Type: 
  Country: None (occurrence: None)
  Receive Date: 20120106
  Receipt Date: 20120105
  Transmission Date: 20120608
  Serious: Yes (Other)
  Sender: FDA-Public Use
  Company Number: US-ROCHE-1027834

PATIENT
  Sex: Female

DRUGS (6)
  1. BONIVA [Suspect]
     Indication: OSTEITIS DEFORMANS
  2. FOSAMAX [Suspect]
     Indication: OSTEITIS DEFORMANS
  3. BONIVA [Suspect]
     Indication: OSTEOPOROSIS
  4. BONIVA [Suspect]
     Indication: OSTEOPENIA
     Dates: start: 20070801, end: 20080601
  5. FOSAMAX [Suspect]
     Indication: OSTEOPENIA
  6. FOSAMAX [Suspect]
     Indication: OSTEOPOROSIS
     Dates: start: 19980101, end: 20070801

REACTIONS (2)
  - EMOTIONAL DISTRESS [None]
  - FEMUR FRACTURE [None]
